FAERS Safety Report 23219008 (Version 2)
Quarter: 2024Q1

REPORT INFORMATION
  Report Type: Spontaneous
  Country: US (occurrence: US)
  Receive Date: 20231122
  Receipt Date: 20240206
  Transmission Date: 20240409
  Serious: No
  Sender: FDA-Public Use
  Company Number: US-BRISTOL-MYERS SQUIBB COMPANY-2023-167847

PATIENT
  Age: 82 Year
  Sex: Male

DRUGS (2)
  1. REVLIMID [Suspect]
     Active Substance: LENALIDOMIDE
     Indication: Plasma cell myeloma
     Route: 048
     Dates: start: 20230817
  2. REVLIMID [Suspect]
     Active Substance: LENALIDOMIDE
     Route: 048

REACTIONS (7)
  - Asthenia [Unknown]
  - Pain [Unknown]
  - Insomnia [Unknown]
  - Sinusitis [Not Recovered/Not Resolved]
  - Constipation [Unknown]
  - Off label use [Unknown]
  - Product dose omission issue [Unknown]
